FAERS Safety Report 5350371-7 (Version None)
Quarter: 2007Q2

REPORT INFORMATION
  Report Type: 
  Country: None (occurrence: None)
  Receive Date: 20070608
  Receipt Date: 20070530
  Transmission Date: 20071010
  Serious: Yes (Other)
  Sender: FDA-Public Use
  Company Number: US-SHR-US-2007-020022

PATIENT
  Age: 29 Year
  Sex: Female
  Weight: 54 kg

DRUGS (1)
  1. YAZ [Suspect]
     Dosage: 1 TAB(S), 1X/DAY
     Route: 048
     Dates: start: 20060901, end: 20070405

REACTIONS (2)
  - CEREBROVASCULAR ACCIDENT [None]
  - CEREBROVASCULAR SPASM [None]
